FAERS Safety Report 4805880-3 (Version None)
Quarter: 2005Q4

REPORT INFORMATION
  Report Type: 
  Country: None (occurrence: None)
  Receive Date: 20051019
  Receipt Date: 20051011
  Transmission Date: 20060501
  Serious: Yes (Hospitalization)
  Sender: FDA-Public Use
  Company Number: 218497

PATIENT
  Age: 69 Year
  Sex: Male
  Weight: 70 kg

DRUGS (11)
  1. AVASTIN [Suspect]
     Indication: GASTROOESOPHAGEAL CANCER
     Dosage: 15 MG/KG, Q3W, INTRAVENOUS
     Route: 042
     Dates: start: 20050725, end: 20050926
  2. OXALIPLATIN (OXALIPLATIN) [Suspect]
     Indication: GASTROOESOPHAGEAL CANCER
     Dosage: 75 MG/M2, Q3W, INTRAVENOUS
     Route: 042
     Dates: start: 20050725, end: 20050926
  3. DOCETAXEL (DOCETAXEL) [Suspect]
     Indication: GASTROOESOPHAGEAL CANCER
     Dosage: 70 MG/M2, Q3W, INTRAVENOUS
     Route: 042
     Dates: start: 20050725, end: 20050926
  4. FERROUS SULFATE TAB [Concomitant]
  5. MOTRIN [Concomitant]
  6. PERI-COLACE [Concomitant]
  7. XANAX [Concomitant]
  8. MULTIVITAMIN (MULTIVITAMINS NOS) [Concomitant]
  9. ANTIVERT NOS (MECLIZINE HYDROCHLORIDE, NIACIN) [Concomitant]
  10. CALCIUM (CALCIUM NOS) [Concomitant]
  11. ASPIRIN [Concomitant]

REACTIONS (2)
  - FALL [None]
  - HAEMOGLOBIN DECREASED [None]
